FAERS Safety Report 9856901 (Version 1)
Quarter: 2014Q1

REPORT INFORMATION
  Report Type: Spontaneous
  Country: US (occurrence: None)
  Receive Date: 20140128
  Receipt Date: 20140128
  Transmission Date: 20141002
  Serious: Yes (Death)
  Sender: FDA-Public Use
  Company Number: DSU-2014-00141

PATIENT
  Age: 68 Year
  Sex: Male

DRUGS (2)
  1. BENICAR [Suspect]
     Indication: HYPERTENSION
     Route: 048
  2. CRESTOR (ROSUVASTATIN) (ROSUVASTATIN) [Concomitant]

REACTIONS (2)
  - Myocardial infarction [None]
  - Unevaluable event [None]
